FAERS Safety Report 5718724-2 (Version None)
Quarter: 2008Q2

REPORT INFORMATION
  Report Type: 
  Country: None (occurrence: None)
  Receive Date: 20080423
  Receipt Date: 20080409
  Transmission Date: 20081010
  Serious: Yes (Death)
  Sender: FDA-Public Use
  Company Number: M7002-00647-SPO-AU

PATIENT
  Age: 42 Year
  Sex: Male

DRUGS (1)
  1. ONTAK [Suspect]
     Indication: MYCOSIS FUNGOIDES
     Dosage: 18 MG, INTRAVENOUS INFUSION

REACTIONS (1)
  - DISEASE PROGRESSION [None]
